FAERS Safety Report 18480641 (Version 1)
Quarter: 2020Q4

REPORT INFORMATION
  Report Type: Spontaneous
  Country: US (occurrence: US)
  Receive Date: 20201109
  Receipt Date: 20201109
  Transmission Date: 20210114
  Serious: Yes (Life-Threatening)
  Sender: FDA-Public Use
  Company Number: None

PATIENT
  Age: 85 Year
  Sex: Male
  Weight: 91 kg

DRUGS (3)
  1. ACETAMINOPHEN-CODEINE (TYLENOL) [Concomitant]
  2. CEFTRIAXONE. [Concomitant]
     Active Substance: CEFTRIAXONE
  3. REMDESIVIR 100MG [Suspect]
     Active Substance: REMDESIVIR
     Route: 042
     Dates: start: 20201101, end: 20201103

REACTIONS (1)
  - Anaphylactic reaction [None]

NARRATIVE: CASE EVENT DATE: 20201103
